FAERS Safety Report 9269114 (Version 2)
Quarter: 2013Q3

REPORT INFORMATION
  Report Type: Report from Study
  Country: DE (occurrence: DE)
  Receive Date: 20130503
  Receipt Date: 20130927
  Transmission Date: 20140515
  Serious: Yes (Hospitalization)
  Sender: FDA-Public Use
  Company Number: DE-SHIRE-ALL1-2013-02657

PATIENT
  Age: 30 Year
  Sex: Male
  Weight: 68.8 kg

DRUGS (15)
  1. IDURSULFASE [Suspect]
     Indication: MUCOPOLYSACCHARIDOSIS II
     Dosage: 40 MG, UNKNOWN
     Route: 041
     Dates: start: 20120717
  2. IDURSULFASE [Suspect]
     Dosage: 34.4 MG, 1X/WEEK
     Route: 041
     Dates: start: 20040113
  3. IDURSULFASE [Suspect]
     Dosage: 48 MG, UNKNOWN
     Route: 041
     Dates: start: 20090421
  4. IDURSULFASE [Suspect]
     Dosage: 48.6 MG, UNKNOWN
     Route: 041
     Dates: start: 20110808
  5. ESOMEPRAZOL                        /01479301/ [Concomitant]
     Indication: GASTROINTESTINAL DISORDER
     Dosage: 20 MG, 1X/DAY:QD
     Route: 048
     Dates: start: 20111107
  6. ESOMEPRAZOL                        /01479301/ [Concomitant]
     Dosage: 40 MG, 2X/DAY:BID
     Route: 048
     Dates: end: 2009
  7. RAMIPRIL [Concomitant]
     Indication: CARDIOVASCULAR DISORDER
     Dosage: 10 MG, 1X/DAY:QD
     Route: 048
     Dates: start: 20111107
  8. OMEPRAZOLE [Concomitant]
     Indication: GASTROINTESTINAL DISORDER
     Dosage: 40 MG, 1X/DAY:QD
     Route: 048
     Dates: start: 20111107
  9. OMEPRAZOLE [Concomitant]
     Dosage: 40 MG, 1X/DAY:QD
     Route: 048
     Dates: end: 2009
  10. OMEPRAZOLE [Concomitant]
     Dosage: 40 MG, 1X/DAY:QD
     Route: 048
     Dates: end: 2011
  11. METHAMIZOL [Concomitant]
     Indication: PAIN
     Dosage: 1 G, 3X/DAY:TID
     Route: 048
     Dates: start: 20111107
  12. METHAMIZOL [Concomitant]
     Dosage: 500 MG, 2X/DAY:BID
     Route: 048
     Dates: start: 20110114, end: 20111107
  13. METHAMIZOL [Concomitant]
     Dosage: 500 MG, 2X/DAY:BID
     Route: 048
     Dates: end: 2009
  14. DILTIAZEM HYDROCHLORIDE [Concomitant]
     Indication: CARDIOVASCULAR DISORDER
     Dosage: 60 MG, 3X/DAY:TID
     Route: 048
     Dates: start: 201108
  15. CANDESARTAN [Concomitant]
     Indication: CARDIOVASCULAR DISORDER
     Dosage: 12 MG, 1X/DAY:QD
     Route: 048

REACTIONS (1)
  - Catheter site infection [Recovered/Resolved]
